FAERS Safety Report 14614944 (Version 9)
Quarter: 2018Q2

REPORT INFORMATION
  Report Type: Report from Study
  Country: ES (occurrence: ES)
  Receive Date: 20180308
  Receipt Date: 20180525
  Transmission Date: 20180711
  Serious: Yes (Hospitalization)
  Sender: FDA-Public Use
  Company Number: ES-PFIZER INC-2018061513

PATIENT
  Age: 49 Year
  Sex: Female
  Weight: 44.4 kg

DRUGS (16)
  1. METOCLOPRAMIDE. [Concomitant]
     Active Substance: METOCLOPRAMIDE
     Indication: NAUSEA
     Dosage: 1 MG, UNK
     Route: 048
     Dates: start: 201705
  2. PEMBROLIZUMAB. [Suspect]
     Active Substance: PEMBROLIZUMAB
     Dosage: 200 MG, Q3W
     Route: 042
     Dates: start: 20180202, end: 20180202
  3. AXITINIB [Suspect]
     Active Substance: AXITINIB
     Dosage: 7 MG, BID
     Route: 048
     Dates: start: 20171109, end: 20180201
  4. PEMBROLIZUMAB. [Suspect]
     Active Substance: PEMBROLIZUMAB
     Dosage: 200 MG, Q3W
     Route: 042
     Dates: start: 20180223
  5. OMEPRAZOLE. [Concomitant]
     Active Substance: OMEPRAZOLE
     Indication: PROPHYLAXIS AGAINST GASTROINTESTINAL ULCER
     Dosage: 10 MG, UNK
     Route: 048
     Dates: start: 20170513
  6. POTASION [Concomitant]
     Active Substance: POTASSIUM CHLORIDE
     Dosage: 1 DF, UNK
     Route: 048
     Dates: start: 20180111, end: 20180221
  7. CEFTRIAXONE. [Concomitant]
     Active Substance: CEFTRIAXONE
     Dosage: 1 G, UNK
     Dates: start: 20180206, end: 20180206
  8. AXITINIB [Suspect]
     Active Substance: AXITINIB
     Dosage: 5 MG, BID
     Route: 048
     Dates: start: 20180222
  9. AVARIC [Concomitant]
     Dosage: 133 UG, UNK
     Route: 048
     Dates: start: 20170727
  10. METOCLOPRAMIDE. [Concomitant]
     Active Substance: METOCLOPRAMIDE
     Indication: NAUSEA
     Dosage: 10 MG, UNK
     Dates: start: 20180206, end: 20180206
  11. ACETAMINOPHEN. [Concomitant]
     Active Substance: ACETAMINOPHEN
     Dosage: 1 G, UNK
     Route: 048
     Dates: start: 20170614
  12. ENALAPRIL [Concomitant]
     Active Substance: ENALAPRIL
     Dosage: 15 MG, UNK
     Route: 048
     Dates: start: 20160115, end: 20180207
  13. AXITINIB [Suspect]
     Active Substance: AXITINIB
     Dosage: 7 MG, BID
     Route: 048
     Dates: start: 20180202, end: 20180205
  14. PEMBROLIZUMAB. [Suspect]
     Active Substance: PEMBROLIZUMAB
     Indication: RENAL CELL CARCINOMA
     Dosage: 200 MG, Q3W (INFUSION VOLUME: 100 ML)
     Route: 042
     Dates: start: 20170616, end: 20180112
  15. AXITINIB [Suspect]
     Active Substance: AXITINIB
     Indication: RENAL CELL CARCINOMA
     Dosage: 5 MG, BID
     Route: 048
     Dates: start: 20170616, end: 20171108
  16. MST [Concomitant]
     Active Substance: MORPHINE SULFATE\NALTREXONE HYDROCHLORIDE
     Dosage: 15 MG, UNK
     Route: 048
     Dates: start: 20171019

REACTIONS (1)
  - Metabolic acidosis [Recovered/Resolved]

NARRATIVE: CASE EVENT DATE: 20180206
